FAERS Safety Report 25949147 (Version 1)
Quarter: 2025Q4

REPORT INFORMATION
  Report Type: Spontaneous
  Country: TR (occurrence: TR)
  Receive Date: 20251022
  Receipt Date: 20251022
  Transmission Date: 20260118
  Serious: Yes (Other)
  Sender: NOVO NORDISK
  Company Number: TR-NOVOPROD-1543613

PATIENT
  Age: 59 Year
  Sex: Female

DRUGS (3)
  1. SAXENDA [Suspect]
     Active Substance: LIRAGLUTIDE
     Indication: Product used for unknown indication
     Dosage: 0.2 MG
  2. SAXENDA [Suspect]
     Active Substance: LIRAGLUTIDE
     Dosage: 3.2 MG
  3. SAXENDA [Suspect]
     Active Substance: LIRAGLUTIDE
     Dosage: 3 MG

REACTIONS (8)
  - Toxicity to various agents [Unknown]
  - Vomiting [Unknown]
  - Increased appetite [Unknown]
  - Pyrexia [Unknown]
  - Brain fog [Unknown]
  - Nausea [Unknown]
  - Off label use [Unknown]
  - Product quality issue [Unknown]
